FAERS Safety Report 12387599 (Version 2)
Quarter: 2016Q2

REPORT INFORMATION
  Report Type: Report from Study
  Country: US (occurrence: US)
  Receive Date: 20160520
  Receipt Date: 20160525
  Transmission Date: 20160815
  Serious: Yes (Other)
  Sender: FDA-Public Use
  Company Number: US-AMGEN-USASL2016062886

PATIENT
  Age: 80 Year
  Sex: Female

DRUGS (1)
  1. ENBREL [Suspect]
     Active Substance: ETANERCEPT
     Indication: RHEUMATOID ARTHRITIS
     Dosage: 50 MG, QWK
     Route: 065

REACTIONS (6)
  - Thyroid operation [Unknown]
  - Dysphonia [Recovering/Resolving]
  - Parathyroidectomy [Unknown]
  - Pneumonia [Unknown]
  - Joint arthroplasty [Unknown]
  - Surgery [Unknown]

NARRATIVE: CASE EVENT DATE: 201507
